FAERS Safety Report 15398424 (Version 2)
Quarter: 2018Q4

REPORT INFORMATION
  Report Type: Spontaneous
  Country: US (occurrence: US)
  Receive Date: 20180918
  Receipt Date: 20181005
  Transmission Date: 20190204
  Serious: No
  Sender: FDA-Public Use
  Company Number: US-CELGENEUS-USA-20180903914

PATIENT
  Age: 61 Year
  Sex: Male

DRUGS (4)
  1. DICLOFENAC [Concomitant]
     Active Substance: DICLOFENAC
     Indication: ARTHRITIS
  2. OTEZLA [Suspect]
     Active Substance: APREMILAST
     Indication: PSORIASIS
     Dosage: 60 MILLIGRAM
     Route: 048
     Dates: start: 20170523
  3. DICLOFENAC [Concomitant]
     Active Substance: DICLOFENAC
     Indication: SCIATICA
     Route: 048
  4. DERMAZINC [Concomitant]
     Indication: PSORIASIS
     Route: 061
     Dates: start: 2010

REACTIONS (2)
  - Sciatica [Recovering/Resolving]
  - Stress [Not Recovered/Not Resolved]

NARRATIVE: CASE EVENT DATE: 201712
